FAERS Safety Report 13338758 (Version 1)
Quarter: 2017Q1

REPORT INFORMATION
  Report Type: Spontaneous
  Country: US (occurrence: US)
  Receive Date: 20170315
  Receipt Date: 20170315
  Transmission Date: 20170428
  Serious: No
  Sender: FDA-Public Use
  Company Number: US-DEPOMED, INC.-US-2016DEP012201

PATIENT

DRUGS (1)
  1. GRALISE [Suspect]
     Active Substance: GABAPENTIN
     Indication: FIBROMYALGIA
     Dosage: 300 MG, QD
     Route: 048
     Dates: start: 20160922

REACTIONS (8)
  - Somnolence [Unknown]
  - Product use issue [Unknown]
  - Unevaluable event [Unknown]
  - Insomnia [Unknown]
  - Hypoaesthesia oral [Unknown]
  - Pain in extremity [Unknown]
  - Emotional distress [Unknown]
  - Muscle spasms [Unknown]

NARRATIVE: CASE EVENT DATE: 20160922
